APPROVED DRUG PRODUCT: SODIUM PICOSULFATE, MAGNESIUM OXIDE AND ANHYDROUS CITRIC ACID
Active Ingredient: CITRIC ACID; MAGNESIUM OXIDE; SODIUM PICOSULFATE
Strength: 12GM/PACKET;3.5GM/PACKET;10MG/PACKET
Dosage Form/Route: FOR SOLUTION;ORAL
Application: A212789 | Product #001
Applicant: HETERO LABS LTD UNIT V
Approved: Jul 18, 2022 | RLD: No | RS: Yes | Type: RX